FAERS Safety Report 20704527 (Version 1)
Quarter: 2022Q2

REPORT INFORMATION
  Report Type: Spontaneous
  Country: RO (occurrence: RO)
  Receive Date: 20220413
  Receipt Date: 20220413
  Transmission Date: 20220720
  Serious: Yes (Other)
  Sender: FDA-Public Use
  Company Number: RO-TEVA-2022-RO-2027337

PATIENT
  Age: 49 Year
  Sex: Female

DRUGS (1)
  1. COPAXONE [Suspect]
     Active Substance: GLATIRAMER ACETATE
     Indication: Relapsing-remitting multiple sclerosis
     Route: 065
     Dates: end: 2020

REACTIONS (8)
  - Multiple sclerosis relapse [Unknown]
  - Paraparesis [Unknown]
  - Hypertonia [Unknown]
  - Extensor plantar response [Unknown]
  - Tendon disorder [Unknown]
  - Ataxia [Unknown]
  - Micturition urgency [Unknown]
  - Multiple sclerosis [Unknown]

NARRATIVE: CASE EVENT DATE: 20200101
